FAERS Safety Report 6847771-2 (Version None)
Quarter: 2010Q3

REPORT INFORMATION
  Report Type: 
  Country: None (occurrence: None)
  Receive Date: 20100716
  Receipt Date: 20100714
  Transmission Date: 20110219
  Serious: Yes (Death, Hospitalization, Other)
  Sender: FDA-Public Use
  Company Number: PHHY2008CA06007

PATIENT
  Sex: Male

DRUGS (8)
  1. SANDOSTATIN LAR [Suspect]
     Indication: NEUROENDOCRINE TUMOUR
     Dosage: 40 MG EVERY 4 WEEKS
     Route: 030
     Dates: start: 20050520
  2. WARFARIN SODIUM [Concomitant]
     Dosage: UNK, QD
  3. BISOPROLOL [Concomitant]
  4. MONOCARD [Concomitant]
  5. MULTI-VITAMINS [Concomitant]
     Dosage: UNK, QD
  6. GRAPE SEED EXTRACT [Concomitant]
  7. PHYTO IMMUNE [Concomitant]
  8. DOMPERIDONE [Concomitant]

REACTIONS (17)
  - ASTHENIA [None]
  - BACK PAIN [None]
  - CARDIAC PACEMAKER INSERTION [None]
  - CELLULITIS [None]
  - ELECTROCARDIOGRAM AMBULATORY [None]
  - HAEMATEMESIS [None]
  - HEART RATE IRREGULAR [None]
  - LOSS OF CONSCIOUSNESS [None]
  - MALAISE [None]
  - MALIGNANT NEOPLASM PROGRESSION [None]
  - OBSTRUCTION GASTRIC [None]
  - OEDEMA PERIPHERAL [None]
  - PRESYNCOPE [None]
  - SICK SINUS SYNDROME [None]
  - SYNCOPE [None]
  - VOMITING [None]
  - WEIGHT DECREASED [None]
